FAERS Safety Report 9223261 (Version 1)
Quarter: 2013Q2

REPORT INFORMATION
  Report Type: Spontaneous
  Country: US (occurrence: US)
  Receive Date: 20130410
  Receipt Date: 20130410
  Transmission Date: 20140414
  Serious: Yes (Hospitalization)
  Sender: FDA-Public Use
  Company Number: US-BAYER-2013-044478

PATIENT
  Age: 88 Year
  Sex: Male

DRUGS (2)
  1. ALEVE TABLET [Suspect]
     Indication: BACK PAIN
     Dosage: 1/2 TABLET
  2. ALEVE TABLET [Suspect]
     Indication: BACK PAIN
     Dosage: 1/2 TABLET, BID

REACTIONS (5)
  - Hypertension [None]
  - Renal disorder [None]
  - Pain [None]
  - Feeling abnormal [None]
  - Incorrect dose administered [None]
